FAERS Safety Report 7134041-0 (Version None)
Quarter: 2010Q4

REPORT INFORMATION
  Report Type: 
  Country: None (occurrence: None)
  Receive Date: 20101117
  Receipt Date: 20101102
  Transmission Date: 20110411
  Serious: Yes (Other)
  Sender: FDA-Public Use
  Company Number: DSM-2010-01632

PATIENT
  Age: 80 Year
  Sex: Male

DRUGS (1)
  1. SEVIKAR (OLMESARTAN MEDOXOMIL, AMLODIPINE BESILATE) (TABLET) [Suspect]
     Indication: HYPERTENSION
     Dosage: 20/5 MG, ORAL
     Route: 048
     Dates: start: 20090101

REACTIONS (1)
  - HYPERTENSION [None]
